FAERS Safety Report 24099572 (Version 1)
Quarter: 2024Q3

REPORT INFORMATION
  Report Type: Spontaneous
  Country: US (occurrence: US)
  Receive Date: 20240716
  Receipt Date: 20240716
  Transmission Date: 20241017
  Serious: No
  Sender: NOVO NORDISK
  Company Number: US-NOVOPROD-1212999

PATIENT
  Sex: Female
  Weight: 183 kg

DRUGS (1)
  1. OZEMPIC [Suspect]
     Active Substance: SEMAGLUTIDE
     Indication: Product used for unknown indication
     Dosage: 2 MG
     Route: 058
     Dates: start: 20191202

REACTIONS (3)
  - Weight decreased [Recovered/Resolved]
  - Glycosylated haemoglobin decreased [Unknown]
  - Nausea [Unknown]
